FAERS Safety Report 25437034 (Version 4)
Quarter: 2025Q4

REPORT INFORMATION
  Report Type: Report from Study
  Country: US (occurrence: US)
  Receive Date: 20250615
  Receipt Date: 20251211
  Transmission Date: 20260117
  Serious: Yes (Disabling, Other)
  Sender: ABBVIE
  Company Number: US-ABBVIE-6324043

PATIENT
  Age: 73 Year
  Sex: Female
  Weight: 59 kg

DRUGS (30)
  1. BOTOX [Suspect]
     Active Substance: ONABOTULINUMTOXINA
     Indication: Migraine
     Dosage: TIME INTERVAL: AS NECESSARY
     Route: 030
     Dates: start: 202501, end: 202501
  2. BOTOX [Suspect]
     Active Substance: ONABOTULINUMTOXINA
     Indication: Migraine
     Dosage: TIME INTERVAL: AS NECESSARY
     Route: 030
     Dates: start: 20160612, end: 20160612
  3. BOTOX [Suspect]
     Active Substance: ONABOTULINUMTOXINA
     Indication: Migraine
     Dosage: TIME INTERVAL: AS NECESSARY: FREQUENCY: EVERY 12 WKS
     Route: 030
     Dates: start: 20241024, end: 20241024
  4. GABAPENTIN [Concomitant]
     Active Substance: GABAPENTIN
     Indication: Product used for unknown indication
     Dosage: FREQUENCY: THREE HS
     Dates: start: 2025
  5. BACLOFEN [Concomitant]
     Active Substance: BACLOFEN
     Indication: Product used for unknown indication
     Dosage: FREQUENCY: TWO AM, PM, + HS
     Route: 065
     Dates: start: 2025
  6. CLONAZEPAM [Concomitant]
     Active Substance: CLONAZEPAM
     Indication: Product used for unknown indication
     Dosage: 0.05 1/2-1 TAB Q. 8 HRS PRN
     Route: 065
     Dates: start: 2025
  7. LEVOTHYROXINE [Concomitant]
     Active Substance: LEVOTHYROXINE
     Indication: Product used for unknown indication
     Dosage: ONE DAILY
     Route: 065
     Dates: start: 2025
  8. NURTEC ODT [Concomitant]
     Active Substance: RIMEGEPANT SULFATE
     Indication: Product used for unknown indication
     Route: 065
     Dates: start: 2025
  9. DOXYCYCLINE [Concomitant]
     Active Substance: DOXYCYCLINE
     Indication: Product used for unknown indication
     Dates: start: 2025
  10. ONDANSETRON [Concomitant]
     Active Substance: ONDANSETRON
     Indication: Nausea
     Dosage: TIME INTERVAL: AS NECESSARY: FREQUENCY: PRN
     Dates: start: 2025
  11. CLINDAMYCIN PHOSPHATE [Concomitant]
     Active Substance: CLINDAMYCIN PHOSPHATE
     Indication: Product used for unknown indication
     Dosage: 1 PERCENT TOPICAL SOLUTION, ROUTE: TOPICAL
     Route: 065
     Dates: start: 2025
  12. RESTASIS [Concomitant]
     Active Substance: CYCLOSPORINE
     Indication: Product used for unknown indication
     Dosage: EYE GTTS
     Route: 065
     Dates: start: 2025
  13. DICLOFENAC SODIUM [Concomitant]
     Active Substance: DICLOFENAC SODIUM
     Indication: Product used for unknown indication
     Dosage: TOPICAL GEL 1 PERCENT TO HANDS EVERY NIGHT, ROUTE: TOPICAL
     Route: 065
     Dates: start: 2025
  14. LYRICA [Concomitant]
     Active Substance: PREGABALIN
     Indication: Product used for unknown indication
     Dates: start: 2025
  15. DOCUSATE SODIUM [Concomitant]
     Active Substance: DOCUSATE SODIUM
     Indication: Product used for unknown indication
     Dosage: 250MG TWO HS
     Route: 065
     Dates: start: 2025
  16. BISACODYL [Concomitant]
     Active Substance: BISACODYL
     Indication: Product used for unknown indication
     Dosage: ONE OR TWO HS
     Route: 065
     Dates: start: 2025
  17. TRAMADOL [Concomitant]
     Active Substance: TRAMADOL
     Indication: Product used for unknown indication
     Route: 065
     Dates: start: 2025
  18. MYRBETRIQ [Concomitant]
     Active Substance: MIRABEGRON
     Indication: Product used for unknown indication
     Dosage: FREQUENCY: EVERY DAY
     Dates: start: 2025
  19. ROSUVASTATIN [Concomitant]
     Active Substance: ROSUVASTATIN
     Indication: Product used for unknown indication
     Dosage: FREQUENCY: QOD
     Route: 065
     Dates: start: 2025
  20. ASPIRIN [Concomitant]
     Active Substance: ASPIRIN
     Indication: Product used for unknown indication
     Dosage: FREQUENCY: QD
     Route: 065
     Dates: start: 2025
  21. LOSARTAN [Concomitant]
     Active Substance: LOSARTAN
     Indication: Product used for unknown indication
     Dosage: FREQUENCY: EVERY DAY
     Route: 065
     Dates: start: 2025
  22. COLCHICINE [Concomitant]
     Active Substance: COLCHICINE
     Indication: Product used for unknown indication
     Route: 065
     Dates: start: 2025
  23. PEPCID [Concomitant]
     Active Substance: FAMOTIDINE
     Indication: Product used for unknown indication
     Route: 065
     Dates: start: 2025
  24. FOLIC ACID [Concomitant]
     Active Substance: FOLIC ACID
     Indication: Product used for unknown indication
     Dosage: FREQUENCY: QD
     Route: 065
     Dates: start: 2025
  25. METHOTREXATE [Concomitant]
     Active Substance: METHOTREXATE
     Indication: Product used for unknown indication
     Dosage: 2.5 MG TAB 6 TABS 1 X WKLY (WED)
     Dates: start: 2025
  26. ALENDRONATE [Concomitant]
     Active Substance: ALENDRONATE SODIUM
     Indication: Product used for unknown indication
     Dosage: FREQUENCY: 1 X WKLY
     Route: 065
     Dates: start: 2025
  27. MURO 128 [Concomitant]
     Active Substance: SODIUM CHLORIDE
     Indication: Product used for unknown indication
     Dosage: FREQUENCY: HS, ROUTE: OPHTHALMIC
     Route: 065
     Dates: start: 2025
  28. SHINGRIX [Concomitant]
     Active Substance: RECOMBINANT VARICELLA ZOSTER VIRUS (VZV) GLYCOPROTEIN E
     Indication: Product used for unknown indication
     Route: 065
     Dates: start: 20191206
  29. SHINGRIX [Concomitant]
     Active Substance: RECOMBINANT VARICELLA ZOSTER VIRUS (VZV) GLYCOPROTEIN E
     Indication: Product used for unknown indication
     Route: 065
     Dates: start: 20200627
  30. QULIPTA [Suspect]
     Active Substance: ATOGEPANT
     Indication: Product used for unknown indication
     Dosage: QUILIPTA 60 MG WHICH WAS 300 FOR 30 PILLS
     Route: 048
     Dates: start: 2025

REACTIONS (40)
  - Blepharoplasty [Unknown]
  - Dental operation [Recovered/Resolved]
  - Neck surgery [Unknown]
  - Visual impairment [Recovering/Resolving]
  - Spinal nerve stimulator implantation [Unknown]
  - Weight decreased [Unknown]
  - Headache [Unknown]
  - Eustachian tube dysfunction [Unknown]
  - Tinnitus [Unknown]
  - Deafness neurosensory [Unknown]
  - Road traffic accident [Unknown]
  - Arthralgia [Not Recovered/Not Resolved]
  - Temporomandibular pain and dysfunction syndrome [Unknown]
  - Raynaud^s phenomenon [Unknown]
  - Sleep apnoea syndrome [Unknown]
  - Arthritis [Unknown]
  - Adiposis dolorosa [Unknown]
  - Adenoma benign [Unknown]
  - Renal cyst [Unknown]
  - Osteopenia [Unknown]
  - Bursa removal [Unknown]
  - Arthrodesis [Unknown]
  - Haematuria [Unknown]
  - Hepatic cyst [Unknown]
  - Chest pain [Unknown]
  - Temporomandibular joint surgery [Unknown]
  - Encephalomalacia [Unknown]
  - Joint arthroplasty [Unknown]
  - Intervertebral disc operation [Unknown]
  - Lipoinjection [Unknown]
  - Orthognathic surgery [Unknown]
  - Deafness bilateral [Unknown]
  - Blindness unilateral [Unknown]
  - Neurotrophic keratopathy [Unknown]
  - Persistent corneal epithelial defect [Not Recovered/Not Resolved]
  - Conjunctivochalasis [Unknown]
  - Dry eye [Not Recovered/Not Resolved]
  - Osteoporosis [Unknown]
  - Arteriosclerosis [Unknown]
  - Polyp [Unknown]

NARRATIVE: CASE EVENT DATE: 20160902
